FAERS Safety Report 6181344-2 (Version None)
Quarter: 2009Q2

REPORT INFORMATION
  Report Type: 
  Country: None (occurrence: None)
  Receive Date: 20090506
  Receipt Date: 20090427
  Transmission Date: 20091009
  Serious: Yes (Hospitalization)
  Sender: FDA-Public Use
  Company Number: IT-AVENTIS-200910840GDDC

PATIENT
  Age: 60 Year
  Sex: Female

DRUGS (6)
  1. ZARIVIZ [Suspect]
     Dates: start: 20090108, end: 20090109
  2. ROCALTROL [Concomitant]
     Route: 048
     Dates: start: 20080101, end: 20090112
  3. LASIX [Concomitant]
     Route: 048
     Dates: start: 20080101, end: 20090112
  4. GLUCOFERRO [Concomitant]
     Route: 048
     Dates: start: 20080101, end: 20090112
  5. VASEXTEN [Concomitant]
     Route: 048
     Dates: start: 20080101, end: 20090112
  6. ARANESP [Concomitant]
     Route: 058
     Dates: start: 20090107, end: 20090115

REACTIONS (5)
  - ANAEMIA [None]
  - PRURITUS [None]
  - PYREXIA [None]
  - RENAL FAILURE [None]
  - TOXIC SKIN ERUPTION [None]
